FAERS Safety Report 8610628-0 (Version None)
Quarter: 2012Q3

REPORT INFORMATION
  Report Type: 
  Country: None (occurrence: None)
  Receive Date: 20120423
  Receipt Date: 20100909
  Transmission Date: 20120928
  Serious: Yes (Other)
  Sender: FDA-Public Use
  Company Number: PHHY2010US45286

PATIENT
  Age: 75 Year
  Sex: Female
  Weight: 60.5 kg

DRUGS (5)
  1. BONIVA [Concomitant]
  2. VITAMIN D [Concomitant]
  3. CALCIUM CARBONATE [Concomitant]
  4. FEMARA [Suspect]
     Indication: BREAST CANCER
     Dosage: 2.5 MG, QD, ORAL
     Route: 048
     Dates: start: 20080101, end: 20091209
  5. LEVOTHYROXINE SODIUM [Concomitant]

REACTIONS (2)
  - CATARACT [None]
  - CATARACT OPERATION [None]
